FAERS Safety Report 5121144-5 (Version None)
Quarter: 2006Q4

REPORT INFORMATION
  Report Type: 
  Country: None (occurrence: None)
  Receive Date: 20061002
  Receipt Date: 20060808
  Transmission Date: 20070319
  Serious: Yes (Life-Threatening)
  Sender: FDA-Public Use
  Company Number: 2006AP000739

PATIENT
  Age: 60 Year
  Sex: Female

DRUGS (3)
  1. RANITIDINE HYDROCHLORIDE [Suspect]
     Indication: BREAST CANCER METASTATIC
     Dosage: 100 MG
     Dates: start: 20060630, end: 20060630
  2. TAXOL [Suspect]
     Indication: BREAST CANCER METASTATIC
     Dosage: 300 MG; 1 DAY, IV
     Route: 042
     Dates: start: 20060630, end: 20060630
  3. KYTRIL [Suspect]
     Indication: BREAST CANCER METASTATIC
     Dosage: 3 MG
     Route: 042
     Dates: start: 20060630, end: 20060630

REACTIONS (4)
  - BACK PAIN [None]
  - CYANOSIS [None]
  - DYSPNOEA [None]
  - FLUSHING [None]
